FAERS Safety Report 9270815 (Version 1)
Quarter: 2013Q2

REPORT INFORMATION
  Report Type: Spontaneous
  Country: IE (occurrence: IE)
  Receive Date: 20130506
  Receipt Date: 20130506
  Transmission Date: 20140414
  Serious: Yes (Other)
  Sender: FDA-Public Use
  Company Number: IE-RANBAXY-2013RR-68415

PATIENT
  Age: 54 Year
  Sex: Female

DRUGS (5)
  1. CLARITHROMYCIN [Suspect]
     Indication: LOWER RESPIRATORY TRACT INFECTION
     Dosage: 500 MG, BID
     Route: 065
  2. HALOPERIDOL [Concomitant]
     Indication: BIPOLAR DISORDER
     Dosage: 15 MG, TID
     Route: 065
  3. HALOPERIDOL [Concomitant]
     Dosage: 10 UNK, UNK
     Route: 065
  4. CARBAMAZEPINE [Concomitant]
     Indication: BIPOLAR DISORDER
     Dosage: 600 MG/DAY
     Route: 065
  5. PRIADEL [Concomitant]
     Indication: BIPOLAR DISORDER
     Dosage: 600 MG/DAY
     Route: 065

REACTIONS (3)
  - Bipolar disorder [Recovering/Resolving]
  - Hypomania [Recovering/Resolving]
  - Extrapyramidal disorder [Recovering/Resolving]
